FAERS Safety Report 9723301 (Version 1)
Quarter: 2013Q4

REPORT INFORMATION
  Report Type: Report from Study
  Country: US (occurrence: US)
  Receive Date: 20131202
  Receipt Date: 20131202
  Transmission Date: 20140711
  Serious: Yes (Other)
  Sender: FDA-Public Use
  Company Number: US-B.I. PHARMACEUTICALS,INC./RIDGEFIELD-2013-BI-39101GD

PATIENT
  Age: 10 Year
  Sex: 0

DRUGS (2)
  1. CLONIDINE [Suspect]
     Route: 048
  2. GUANFACINE [Suspect]
     Route: 048

REACTIONS (1)
  - Exposure via ingestion [Unknown]
